FAERS Safety Report 8127723-5 (Version None)
Quarter: 2011Q4

REPORT INFORMATION
  Report Type: 
  Country: None (occurrence: None)
  Receive Date: 20111230
  Receipt Date: 20110629
  Transmission Date: 20120403
  Serious: Yes (Other)
  Sender: FDA-Public Use
  Company Number: DSA_47016_2011

PATIENT
  Age: 59 Year
  Sex: Female

DRUGS (1)
  1. CARDIZEM [Suspect]
     Indication: PRODUCT USED FOR UNKNOWN INDICATION
     Dosage: (DF)

REACTIONS (3)
  - ADVERSE REACTION [None]
  - ASTHENIA [None]
  - OVERDOSE [None]
